FAERS Safety Report 4851743-7 (Version None)
Quarter: 2005Q4

REPORT INFORMATION
  Report Type: 
  Country: None (occurrence: None)
  Receive Date: 20051209
  Receipt Date: 20051129
  Transmission Date: 20060501
  Serious: Yes (Other)
  Sender: FDA-Public Use
  Company Number: HQWYE767630NOV05

PATIENT
  Age: 73 Year
  Sex: Male

DRUGS (1)
  1. MINOCYCLINE HCL [Suspect]
     Dosage: DOSE; INTRAVENOUS DRIP
     Dates: start: 20011101, end: 20011101

REACTIONS (1)
  - OCULOMUCOCUTANEOUS SYNDROME [None]
